FAERS Safety Report 4432028-X (Version None)
Quarter: 2004Q3

REPORT INFORMATION
  Report Type: 
  Country: None (occurrence: None)
  Receive Date: 20040818
  Receipt Date: 20040729
  Transmission Date: 20050211
  Serious: Yes (Hospitalization, Other)
  Sender: FDA-Public Use
  Company Number: USA040774037

PATIENT
  Sex: Male

DRUGS (1)
  1. STRATTERA [Suspect]
     Dates: start: 20040101, end: 20040101

REACTIONS (2)
  - INSOMNIA [None]
  - PSYCHOTIC DISORDER [None]
